FAERS Safety Report 9398955 (Version 1)
Quarter: 2013Q3

REPORT INFORMATION
  Report Type: Spontaneous
  Country: JP (occurrence: JP)
  Receive Date: 20130712
  Receipt Date: 20130712
  Transmission Date: 20140515
  Serious: Yes (Death, Life-Threatening)
  Sender: FDA-Public Use
  Company Number: JP-BAXTER-2013BAX027365

PATIENT
  Age: 51 Year
  Sex: Female

DRUGS (5)
  1. CELLTOP 100 MG/5 ML, SOLUTION INJECTABLE POUR PERFUSION [Suspect]
     Indication: SYNOVIAL SARCOMA
     Route: 065
  2. HOLOXAN [Suspect]
     Indication: SYNOVIAL SARCOMA
     Route: 065
  3. CYCLOPHOSPHAMIDE TABLETS 50 MG [Suspect]
     Indication: SYNOVIAL SARCOMA
     Route: 048
  4. GEMCITABINE HYDROCHLORIDE [Suspect]
     Indication: SYNOVIAL SARCOMA
     Route: 065
  5. DOCETAXEL [Suspect]
     Indication: SYNOVIAL SARCOMA
     Route: 065

REACTIONS (2)
  - Acute myeloid leukaemia [Unknown]
  - Death [Fatal]
